FAERS Safety Report 9342114 (Version 1)
Quarter: 2013Q2

REPORT INFORMATION
  Report Type: Spontaneous
  Country: US (occurrence: US)
  Receive Date: 20130611
  Receipt Date: 20130611
  Transmission Date: 20140414
  Serious: Yes (Other)
  Sender: FDA-Public Use
  Company Number: US-PFIZER INC-2013171804

PATIENT
  Age: 63 Year
  Sex: Female
  Weight: 108.84 kg

DRUGS (1)
  1. ESTRING [Suspect]
     Indication: CYSTOCELE
     Dosage: UNK
     Route: 067

REACTIONS (3)
  - Diabetes mellitus [Unknown]
  - Overweight [Unknown]
  - Off label use [Unknown]
